FAERS Safety Report 15287407 (Version 2)
Quarter: 2018Q3

REPORT INFORMATION
  Report Type: Spontaneous
  Country: US (occurrence: US)
  Receive Date: 20180817
  Receipt Date: 20180918
  Transmission Date: 20181010
  Serious: Yes (Other)
  Sender: FDA-Public Use
  Company Number: US-TESARO INC.-TS50-00361-2018USA

PATIENT
  Sex: Female

DRUGS (2)
  1. VARUBI [Suspect]
     Active Substance: ROLAPITANT
     Indication: VOMITING
  2. VARUBI [Suspect]
     Active Substance: ROLAPITANT
     Indication: NAUSEA
     Dosage: 180 MG, EVERY 2 WEEKS
     Route: 048
     Dates: start: 20180614

REACTIONS (4)
  - Metastases to liver [Not Recovered/Not Resolved]
  - Metastases to central nervous system [Unknown]
  - Metastases to spleen [Unknown]
  - White blood cell count decreased [Not Recovered/Not Resolved]
